FAERS Safety Report 7041054-6 (Version None)
Quarter: 2010Q4

REPORT INFORMATION
  Report Type: 
  Country: None (occurrence: None)
  Receive Date: 20101013
  Receipt Date: 20100930
  Transmission Date: 20110411
  Serious: Yes (Death, Other)
  Sender: FDA-Public Use
  Company Number: GB-ELI_LILLY_AND_COMPANY-GB201009005831

PATIENT
  Age: 29 Year
  Sex: Male
  Weight: 81 kg

DRUGS (3)
  1. DULOXETINE HYDROCHLORIDE [Suspect]
     Dosage: UNK, UNKNOWN
     Route: 065
  2. CLOZAPINE [Concomitant]
     Dosage: UNK, UNKNOWN
     Route: 065
  3. NALTREXONE HYDROCHLORIDE [Concomitant]
     Dosage: UNK, UNKNOWN
     Route: 065

REACTIONS (8)
  - CARDIAC ARREST [None]
  - CARDIOMEGALY [None]
  - DRUG INTERACTION [None]
  - DRUG LEVEL INCREASED [None]
  - DUODENITIS [None]
  - GASTROINTESTINAL EROSION [None]
  - INTESTINAL CONGESTION [None]
  - PULMONARY OEDEMA [None]
